FAERS Safety Report 5367662-6 (Version None)
Quarter: 2007Q2

REPORT INFORMATION
  Report Type: 
  Country: None (occurrence: None)
  Receive Date: 20070622
  Receipt Date: 20070110
  Transmission Date: 20071010
  Serious: No
  Sender: FDA-Public Use
  Company Number: US-ASTRAZENECA-2007UW00532

PATIENT
  Age: 75 Year
  Sex: Female
  Weight: 58.1 kg

DRUGS (8)
  1. PULMICORT RESPULES [Suspect]
     Indication: ASTHMA
     Route: 055
  2. DUONEB [Concomitant]
  3. ALBUTEROL [Concomitant]
  4. PREMARIN [Concomitant]
  5. NORVASC [Concomitant]
  6. CRESTOR [Concomitant]
  7. AVANDAMET [Concomitant]
  8. MULTIVITAMIN [Concomitant]

REACTIONS (1)
  - DIZZINESS [None]
